FAERS Safety Report 6709419-7 (Version None)
Quarter: 2010Q2

REPORT INFORMATION
  Report Type: 
  Country: None (occurrence: None)
  Receive Date: 20100504
  Receipt Date: 20100423
  Transmission Date: 20101027
  Serious: Yes (Hospitalization, Other)
  Sender: FDA-Public Use
  Company Number: GB-JNJFOC-20100408230

PATIENT
  Sex: Female
  Weight: 106 kg

DRUGS (8)
  1. REMICADE [Suspect]
     Indication: RHEUMATOID ARTHRITIS
     Route: 042
  2. METHOTREXATE [Concomitant]
  3. PREDNISOLONE [Concomitant]
  4. CALCICHEW [Concomitant]
  5. CODEINE SULFATE [Concomitant]
  6. DICLOFENAC [Concomitant]
  7. FOLIC ACID [Concomitant]
  8. PARACETAMOL [Concomitant]

REACTIONS (1)
  - BASAL CELL CARCINOMA [None]
